FAERS Safety Report 5281661-4 (Version None)
Quarter: 2007Q1

REPORT INFORMATION
  Report Type: 
  Country: None (occurrence: None)
  Receive Date: 20070330
  Receipt Date: 20070322
  Transmission Date: 20070707
  Serious: Yes (Hospitalization)
  Sender: FDA-Public Use
  Company Number: US-AMGEN-US216471

PATIENT
  Sex: Male

DRUGS (2)
  1. ENBREL [Suspect]
     Indication: RHEUMATOID ARTHRITIS
     Route: 058
     Dates: start: 20050322
  2. METHOTREXATE [Concomitant]

REACTIONS (5)
  - ARTHRALGIA [None]
  - CARDIAC PACEMAKER INSERTION [None]
  - MUSCLE ATROPHY [None]
  - PNEUMONIA [None]
  - ROTATOR CUFF REPAIR [None]
